FAERS Safety Report 10716423 (Version 1)
Quarter: 2015Q1

REPORT INFORMATION
  Report Type: Spontaneous
  Country: TN (occurrence: TN)
  Receive Date: 20150116
  Receipt Date: 20150116
  Transmission Date: 20150721
  Serious: Yes (Other)
  Sender: FDA-Public Use
  Company Number: TN-SA-2015SA004324

PATIENT
  Age: 33 Year
  Sex: Female

DRUGS (7)
  1. RIFAMPICIN [Suspect]
     Active Substance: RIFAMPIN
     Indication: PULMONARY TUBERCULOSIS
     Dosage: 2 HR - TIME WITH RESPECT TO WHEN LAST TAKEN
     Route: 065
  2. RIFAMPICIN [Suspect]
     Active Substance: RIFAMPIN
     Indication: PULMONARY TUBERCULOSIS
     Dosage: 3 HR - TIME WITH RESPECT TO LAST TAKEN
     Route: 048
  3. PYRAZINAMIDE. [Suspect]
     Active Substance: PYRAZINAMIDE
     Indication: PULMONARY TUBERCULOSIS
     Route: 065
  4. RIFAMPICIN [Suspect]
     Active Substance: RIFAMPIN
     Indication: IMMUNE TOLERANCE INDUCTION
     Dosage: 2 HR - TIME WITH RESPECT TO WHEN LAST TAKEN
     Route: 065
  5. RIFAMPICIN [Suspect]
     Active Substance: RIFAMPIN
     Indication: IMMUNE TOLERANCE INDUCTION
     Dosage: 3 HR - TIME WITH RESPECT TO LAST TAKEN
     Route: 048
  6. STREPTOMYCIN [Suspect]
     Active Substance: STREPTOMYCIN\STREPTOMYCIN SULFATE
     Indication: PULMONARY TUBERCULOSIS
     Route: 065
  7. ISONIAZID. [Concomitant]
     Active Substance: ISONIAZID
     Indication: PULMONARY TUBERCULOSIS

REACTIONS (5)
  - Anaphylactic reaction [Unknown]
  - Conjunctival hyperaemia [Unknown]
  - Arthralgia [Unknown]
  - Immune tolerance induction [Unknown]
  - Urticaria [Unknown]
